FAERS Safety Report 22821544 (Version 3)
Quarter: 2025Q4

REPORT INFORMATION
  Report Type: Spontaneous
  Country: EU (occurrence: EU)
  Receive Date: 20230814
  Receipt Date: 20251104
  Transmission Date: 20260118
  Serious: Yes (Other)
  Sender: NOVARTIS
  Company Number: EU-002147023-NVSC2023DE176044

PATIENT
  Sex: Male

DRUGS (4)
  1. MAYZENT [Suspect]
     Active Substance: SIPONIMOD
     Indication: Progressive multiple sclerosis
     Dosage: 2 MG
     Route: 065
     Dates: start: 2022
  2. TIZANIDINE [Suspect]
     Active Substance: TIZANIDINE
     Indication: Progressive multiple sclerosis
     Dosage: UNK
     Route: 065
  3. NABIXIMOLS [Concomitant]
     Active Substance: NABIXIMOLS
     Indication: Progressive multiple sclerosis
     Dosage: UNK
     Route: 065
  4. NABIXIMOLS [Concomitant]
     Active Substance: NABIXIMOLS
     Dosage: UNK
     Route: 065

REACTIONS (4)
  - Myocardial infarction [Unknown]
  - Multiple sclerosis [Unknown]
  - Diplopia [Unknown]
  - Impaired healing [Not Recovered/Not Resolved]

NARRATIVE: CASE EVENT DATE: 20220101
